FAERS Safety Report 7768112-2 (Version None)
Quarter: 2011Q3

REPORT INFORMATION
  Report Type: 
  Country: None (occurrence: None)
  Receive Date: 20110922
  Receipt Date: 20110913
  Transmission Date: 20111222
  Serious: Yes (Other)
  Sender: FDA-Public Use
  Company Number: BR-BRISTOL-MYERS SQUIBB COMPANY-16063646

PATIENT
  Age: 78 Year
  Sex: Female
  Weight: 75 kg

DRUGS (5)
  1. IRBESARTAN + HYDROCHLOROTHIAZIDE [Suspect]
     Indication: HYPERTENSION
     Dosage: 1 DF :1 TAB,APROZIDE 300/12.5 MG TABS,5 YEARS AGO
     Route: 048
  2. CARVEDILOL [Concomitant]
     Indication: HYPERTENSION
     Dosage: 1 DF : 2TABS, 2 YEARS AGO
     Route: 048
  3. LEXAPRO [Concomitant]
     Indication: ANXIETY
     Dosage: 1 DF : 1TAB,4 YEARS AGO
     Route: 048
  4. ACTONEL [Suspect]
     Indication: OSTEOPOROSIS
     Dosage: 1 DF : 1 TAB,ACTONEL 150MG,2 YEARS AGO
     Route: 048
  5. CLONAZEPAM [Concomitant]
     Indication: INSOMNIA
     Dosage: 10 YEARS AGO,DROPS
     Route: 048

REACTIONS (2)
  - CARDIAC VALVE DISEASE [None]
  - HUMERUS FRACTURE [None]
